FAERS Safety Report 26188272 (Version 1)
Quarter: 2025Q4

REPORT INFORMATION
  Report Type: Spontaneous
  Country: EU (occurrence: EU)
  Receive Date: 20251222
  Receipt Date: 20251222
  Transmission Date: 20260117
  Serious: Yes (Hospitalization, Other)
  Sender: MYLAN
  Company Number: EU-SANDOZ-SDZ2025DE092376

PATIENT
  Sex: Male

DRUGS (56)
  1. METHOTREXATE [Suspect]
     Active Substance: METHOTREXATE
     Indication: Psoriatic arthropathy
     Dosage: 15 MILLIGRAM (15 MG)
  2. METHOTREXATE [Suspect]
     Active Substance: METHOTREXATE
     Dosage: 15 MILLIGRAM (15 MG)
  3. METHOTREXATE [Suspect]
     Active Substance: METHOTREXATE
     Dosage: 15 MILLIGRAM (15 MG)
     Route: 058
  4. METHOTREXATE [Suspect]
     Active Substance: METHOTREXATE
     Dosage: 15 MILLIGRAM (15 MG)
     Route: 058
  5. METHOTREXATE [Suspect]
     Active Substance: METHOTREXATE
     Dosage: 15 MILLIGRAM (15 MG)
     Dates: start: 20201113, end: 20210730
  6. METHOTREXATE [Suspect]
     Active Substance: METHOTREXATE
     Dosage: 15 MILLIGRAM (15 MG)
     Dates: start: 20201113, end: 20210730
  7. METHOTREXATE [Suspect]
     Active Substance: METHOTREXATE
     Dosage: 15 MILLIGRAM (15 MG)
     Route: 058
     Dates: start: 20201113, end: 20210730
  8. METHOTREXATE [Suspect]
     Active Substance: METHOTREXATE
     Dosage: 15 MILLIGRAM (15 MG)
     Route: 058
     Dates: start: 20201113, end: 20210730
  9. METHOTREXATE [Suspect]
     Active Substance: METHOTREXATE
     Dosage: 15 MILLIGRAM (15 MG)
     Dates: start: 20230203, end: 20230421
  10. METHOTREXATE [Suspect]
     Active Substance: METHOTREXATE
     Dosage: 15 MILLIGRAM (15 MG)
     Dates: start: 20230203, end: 20230421
  11. METHOTREXATE [Suspect]
     Active Substance: METHOTREXATE
     Dosage: 15 MILLIGRAM (15 MG)
     Route: 058
     Dates: start: 20230203, end: 20230421
  12. METHOTREXATE [Suspect]
     Active Substance: METHOTREXATE
     Dosage: 15 MILLIGRAM (15 MG)
     Route: 058
     Dates: start: 20230203, end: 20230421
  13. METHOTREXATE [Suspect]
     Active Substance: METHOTREXATE
     Dosage: 7.5 MILLIGRAM (7.5 MG)
     Dates: start: 20240829, end: 20250301
  14. METHOTREXATE [Suspect]
     Active Substance: METHOTREXATE
     Dosage: 7.5 MILLIGRAM (7.5 MG)
     Dates: start: 20240829, end: 20250301
  15. METHOTREXATE [Suspect]
     Active Substance: METHOTREXATE
     Dosage: 7.5 MILLIGRAM (7.5 MG)
     Route: 058
     Dates: start: 20240829, end: 20250301
  16. METHOTREXATE [Suspect]
     Active Substance: METHOTREXATE
     Dosage: 7.5 MILLIGRAM (7.5 MG)
     Route: 058
     Dates: start: 20240829, end: 20250301
  17. METHOTREXATE [Suspect]
     Active Substance: METHOTREXATE
     Dosage: 7.5 MILLIGRAM (7.5 MG)
  18. METHOTREXATE [Suspect]
     Active Substance: METHOTREXATE
     Dosage: 7.5 MILLIGRAM (7.5 MG)
     Route: 058
  19. METHOTREXATE [Suspect]
     Active Substance: METHOTREXATE
     Dosage: 7.5 MILLIGRAM (7.5 MG)
  20. METHOTREXATE [Suspect]
     Active Substance: METHOTREXATE
     Dosage: 7.5 MILLIGRAM (7.5 MG)
     Route: 058
  21. CELECOXIB [Suspect]
     Active Substance: CELECOXIB
     Indication: Psoriatic arthropathy
     Dosage: 400 MILLIGRAM (400 MG)
     Dates: start: 20201109, end: 20211115
  22. CELECOXIB [Suspect]
     Active Substance: CELECOXIB
     Dosage: 400 MILLIGRAM (400 MG)
     Dates: start: 20201109, end: 20211115
  23. CELECOXIB [Suspect]
     Active Substance: CELECOXIB
     Dosage: 400 MILLIGRAM (400 MG)
     Route: 065
     Dates: start: 20201109, end: 20211115
  24. CELECOXIB [Suspect]
     Active Substance: CELECOXIB
     Dosage: 400 MILLIGRAM (400 MG)
     Route: 065
     Dates: start: 20201109, end: 20211115
  25. CELECOXIB [Suspect]
     Active Substance: CELECOXIB
     Dosage: 200 MILLIGRAM (200 MG)
     Dates: start: 20230203, end: 20231127
  26. CELECOXIB [Suspect]
     Active Substance: CELECOXIB
     Dosage: 200 MILLIGRAM (200 MG)
     Dates: start: 20230203, end: 20231127
  27. CELECOXIB [Suspect]
     Active Substance: CELECOXIB
     Dosage: 200 MILLIGRAM (200 MG)
     Route: 065
     Dates: start: 20230203, end: 20231127
  28. CELECOXIB [Suspect]
     Active Substance: CELECOXIB
     Dosage: 200 MILLIGRAM (200 MG)
     Route: 065
     Dates: start: 20230203, end: 20231127
  29. CELECOXIB [Suspect]
     Active Substance: CELECOXIB
     Dosage: 200 MILLIGRAM (200 MG)
  30. CELECOXIB [Suspect]
     Active Substance: CELECOXIB
     Dosage: 200 MILLIGRAM (200 MG)
     Route: 065
  31. CELECOXIB [Suspect]
     Active Substance: CELECOXIB
     Dosage: 200 MILLIGRAM (200 MG)
  32. CELECOXIB [Suspect]
     Active Substance: CELECOXIB
     Dosage: 200 MILLIGRAM (200 MG)
     Route: 065
  33. IBUPROFEN [Suspect]
     Active Substance: IBUPROFEN
     Indication: Psoriatic arthropathy
     Dosage: 600 MILLIGRAM (600 MG)
     Dates: start: 20231102, end: 20240830
  34. IBUPROFEN [Suspect]
     Active Substance: IBUPROFEN
     Dosage: 600 MILLIGRAM (600 MG)
     Route: 065
     Dates: start: 20231102, end: 20240830
  35. IBUPROFEN [Suspect]
     Active Substance: IBUPROFEN
     Dosage: 600 MILLIGRAM (600 MG)
     Route: 065
     Dates: start: 20231102, end: 20240830
  36. IBUPROFEN [Suspect]
     Active Substance: IBUPROFEN
     Dosage: 600 MILLIGRAM (600 MG)
     Dates: start: 20231102, end: 20240830
  37. COSENTYX [Suspect]
     Active Substance: SECUKINUMAB
     Indication: Psoriatic arthropathy
     Dosage: 150 MILLIGRAM (150 MG)
     Route: 065
     Dates: start: 20190618, end: 20200220
  38. COSENTYX [Suspect]
     Active Substance: SECUKINUMAB
     Dosage: 150 MILLIGRAM (150 MG)
     Dates: start: 20190618, end: 20200220
  39. COSENTYX [Suspect]
     Active Substance: SECUKINUMAB
     Dosage: 150 MILLIGRAM (150 MG)
     Dates: start: 20190618, end: 20200220
  40. COSENTYX [Suspect]
     Active Substance: SECUKINUMAB
     Dosage: 150 MILLIGRAM (150 MG)
     Route: 065
     Dates: start: 20190618, end: 20200220
  41. COSENTYX [Suspect]
     Active Substance: SECUKINUMAB
     Dosage: 150 MILLIGRAM (150 MG)
     Route: 065
     Dates: start: 20201116, end: 20210715
  42. COSENTYX [Suspect]
     Active Substance: SECUKINUMAB
     Dosage: 150 MILLIGRAM (150 MG)
     Dates: start: 20201116, end: 20210715
  43. COSENTYX [Suspect]
     Active Substance: SECUKINUMAB
     Dosage: 150 MILLIGRAM (150 MG)
     Dates: start: 20201116, end: 20210715
  44. COSENTYX [Suspect]
     Active Substance: SECUKINUMAB
     Dosage: 150 MILLIGRAM (150 MG)
     Route: 065
     Dates: start: 20201116, end: 20210715
  45. COSENTYX [Suspect]
     Active Substance: SECUKINUMAB
     Dosage: 150 MILLIGRAM (150 MG)
     Dates: start: 20240830, end: 20250215
  46. COSENTYX [Suspect]
     Active Substance: SECUKINUMAB
     Dosage: 150 MILLIGRAM (150 MG)
     Dates: start: 20240830, end: 20250215
  47. COSENTYX [Suspect]
     Active Substance: SECUKINUMAB
     Dosage: 150 MILLIGRAM (150 MG)
     Route: 065
     Dates: start: 20240830, end: 20250215
  48. COSENTYX [Suspect]
     Active Substance: SECUKINUMAB
     Dosage: 150 MILLIGRAM (150 MG)
     Route: 065
     Dates: start: 20240830, end: 20250215
  49. COSENTYX [Suspect]
     Active Substance: SECUKINUMAB
     Dosage: 150 MILLIGRAM (150 MG)
  50. COSENTYX [Suspect]
     Active Substance: SECUKINUMAB
     Dosage: 150 MILLIGRAM (150 MG)
  51. COSENTYX [Suspect]
     Active Substance: SECUKINUMAB
     Dosage: 150 MILLIGRAM (150 MG)
     Route: 065
  52. COSENTYX [Suspect]
     Active Substance: SECUKINUMAB
     Dosage: 150 MILLIGRAM (150 MG)
     Route: 065
  53. METHOTREXATE [Suspect]
     Active Substance: METHOTREXATE
     Indication: Psoriatic arthropathy
     Dosage: 15 MILLIGRAM (15 MG  )
     Route: 061
  54. METHOTREXATE [Suspect]
     Active Substance: METHOTREXATE
     Dosage: 15 MILLIGRAM (15 MG  )
     Route: 048
  55. METHOTREXATE [Suspect]
     Active Substance: METHOTREXATE
     Dosage: 15 MILLIGRAM (15 MG  )
     Route: 048
  56. METHOTREXATE [Suspect]
     Active Substance: METHOTREXATE
     Dosage: 15 MILLIGRAM (15 MG  )
     Route: 061

REACTIONS (2)
  - Psoriatic arthropathy [Unknown]
  - Product use in unapproved indication [Unknown]

NARRATIVE: CASE EVENT DATE: 20240828
